FAERS Safety Report 20051531 (Version 1)
Quarter: 2021Q4

REPORT INFORMATION
  Report Type: Spontaneous
  Country: US (occurrence: US)
  Receive Date: 20211110
  Receipt Date: 20211110
  Transmission Date: 20220304
  Serious: No
  Sender: FDA-Public Use
  Company Number: US-drreddys-SPO/USA/21/0143521

PATIENT
  Age: 50 Year
  Sex: Female

DRUGS (1)
  1. ZENATANE [Suspect]
     Active Substance: ISOTRETINOIN
     Indication: Product used for unknown indication
     Dosage: RMA ISSUE DATE:2 JULY 2021 2:18:07 PM, 5 AUGUST 2021 7:39:09 PM, 21 SEPTEMBER 2021 5:11:45 PM

REACTIONS (1)
  - Arthralgia [Not Recovered/Not Resolved]
